FAERS Safety Report 10969309 (Version 4)
Quarter: 2015Q2

REPORT INFORMATION
  Report Type: Report from Study
  Country: US (occurrence: US)
  Receive Date: 20150331
  Receipt Date: 20150630
  Transmission Date: 20150821
  Serious: Yes (Hospitalization)
  Sender: FDA-Public Use
  Company Number: US-AMGEN-USANI2015028616

PATIENT
  Age: 59 Year
  Sex: Female

DRUGS (11)
  1. PEGFILGRASTIM [Suspect]
     Active Substance: PEGFILGRASTIM
     Indication: PROPHYLAXIS
     Dosage: 6 MG, Q3WK, DAY 2
     Route: 058
     Dates: start: 20150318
  2. DECADRON [Concomitant]
     Active Substance: DEXAMETHASONE
     Dosage: 4 MG, Q12H
  3. ZOFRAN                             /00955301/ [Concomitant]
     Active Substance: ONDANSETRON HYDROCHLORIDE
     Indication: NAUSEA
     Dosage: 8 MG, Q8H NECESSARY
  4. COMPAZINE [Concomitant]
     Active Substance: PROCHLORPERAZINE MALEATE
     Dosage: UNK UNK, AS NECESSARY
  5. GOODYS [Concomitant]
     Active Substance: ACETAMINOPHEN\ASPIRIN\CAFFEINE
     Dosage: UNK
  6. CYCLOPHOSPHAMIDE. [Concomitant]
     Active Substance: CYCLOPHOSPHAMIDE
     Dosage: 1000 MG, Q3WK
     Route: 042
     Dates: start: 20150317
  7. ROBAXIN [Concomitant]
     Active Substance: METHOCARBAMOL
     Dosage: 500 MG, QID AS NECESSARY
  8. DOCETAXEL. [Concomitant]
     Active Substance: DOCETAXEL
     Dosage: 132 MG, Q3WK
     Route: 042
     Dates: start: 20150317
  9. CARDIZEM [Concomitant]
     Active Substance: DILTIAZEM HYDROCHLORIDE
     Dosage: 30 MG, Q6H
  10. BECLOMETHASONE                     /00212602/ [Concomitant]
     Dosage: 4 PUFFS, BID
     Route: 045
  11. ZOLOFT [Concomitant]
     Active Substance: SERTRALINE HYDROCHLORIDE
     Dosage: 100 MG, QD

REACTIONS (1)
  - Back pain [Recovering/Resolving]

NARRATIVE: CASE EVENT DATE: 20150323
